FAERS Safety Report 9687806 (Version 1)
Quarter: 2013Q4

REPORT INFORMATION
  Report Type: Spontaneous
  Country: US (occurrence: None)
  Receive Date: 20131113
  Receipt Date: 20131113
  Transmission Date: 20140711
  Serious: No
  Sender: FDA-Public Use
  Company Number: None

PATIENT
  Age: 65 Year
  Sex: Female
  Weight: 48.99 kg

DRUGS (12)
  1. SIROLIMUS [Suspect]
     Indication: PLASMA CELL MYELOMA
     Dosage: 12MG DAY-2, 4MG DAYS-1 TO 4
     Dates: start: 20131030, end: 20131104
  2. DECADRON [Suspect]
     Indication: PLASMA CELL MYELOMA
     Route: 048
     Dates: start: 20131101, end: 20131104
  3. ACYCLOVIR [Concomitant]
  4. ALBUTEROL [Concomitant]
  5. CETIRIZINE [Concomitant]
  6. DIPHENHYDRAMINE [Concomitant]
  7. ENOXAPARIN [Concomitant]
  8. FLUCONAZOLE [Concomitant]
  9. MONTELUKAST [Concomitant]
  10. PROCHLOPERAZINE [Concomitant]
  11. DOCUSATE SODIUM [Concomitant]
  12. SENNA DOCUSATE SODIUM [Concomitant]

REACTIONS (2)
  - Ventricular extrasystoles [None]
  - Sinus tachycardia [None]
